FAERS Safety Report 5244827-5 (Version None)
Quarter: 2007Q1

REPORT INFORMATION
  Report Type: 
  Country: None (occurrence: None)
  Receive Date: 20070216
  Receipt Date: 20070206
  Transmission Date: 20070707
  Serious: Yes (Other)
  Sender: FDA-Public Use
  Company Number: 2007BI002623

PATIENT
  Age: 63 Year
  Sex: Female

DRUGS (4)
  1. NATALIZUMAB (NATALIZUMAB) [Suspect]
     Indication: MULTIPLE SCLEROSIS
     Dosage: 300 MG; QM; IV
     Route: 042
     Dates: start: 20060921, end: 20070206
  2. DULOXETIN [Concomitant]
  3. DIURESAL [Concomitant]
  4. MICTONORM [Concomitant]

REACTIONS (5)
  - ASTHENIA [None]
  - CONDITION AGGRAVATED [None]
  - CONFUSIONAL STATE [None]
  - FATIGUE [None]
  - MULTIPLE SCLEROSIS [None]
